FAERS Safety Report 20724555 (Version 1)
Quarter: 2022Q2

REPORT INFORMATION
  Report Type: Spontaneous
  Country: US (occurrence: US)
  Receive Date: 20220419
  Receipt Date: 20220419
  Transmission Date: 20220720
  Serious: No
  Sender: FDA-Public Use
  Company Number: US-BAYER-2022A053969

PATIENT
  Age: 73 Year
  Sex: Female

DRUGS (1)
  1. MIRALAX [Suspect]
     Active Substance: POLYETHYLENE GLYCOL 3350
     Dosage: ONCE IN A DAY DOSE
     Route: 048
     Dates: start: 202203

REACTIONS (5)
  - Dehydration [Recovered/Resolved with Sequelae]
  - Abdominal pain upper [Unknown]
  - Constipation [Unknown]
  - Drug ineffective [Not Recovered/Not Resolved]
  - Incorrect product administration duration [Unknown]

NARRATIVE: CASE EVENT DATE: 20220301
